FAERS Safety Report 11966435 (Version 1)
Quarter: 2016Q1

REPORT INFORMATION
  Report Type: Spontaneous
  Country: US (occurrence: None)
  Receive Date: 20160126
  Receipt Date: 20160126
  Transmission Date: 20160526
  Serious: Yes (Disabling)
  Sender: FDA-Public Use
  Company Number: None

PATIENT
  Age: 45 Year
  Sex: Female
  Weight: 56.7 kg

DRUGS (3)
  1. LIALDA [Suspect]
     Active Substance: MESALAMINE
     Indication: INFLAMMATORY BOWEL DISEASE
     Route: 048
     Dates: start: 20160121, end: 20160124
  2. TRAMADOL. [Concomitant]
     Active Substance: TRAMADOL
  3. LIALDA [Suspect]
     Active Substance: MESALAMINE
     Indication: COLITIS ULCERATIVE
     Route: 048
     Dates: start: 20160121, end: 20160124

REACTIONS (5)
  - Flank pain [None]
  - Inflammation [None]
  - Haematochezia [None]
  - Diarrhoea [None]
  - Malaise [None]

NARRATIVE: CASE EVENT DATE: 20160125
